FAERS Safety Report 17842659 (Version 1)
Quarter: 2020Q2

REPORT INFORMATION
  Report Type: Report from Study
  Country: US (occurrence: US)
  Receive Date: 20200529
  Receipt Date: 20200529
  Transmission Date: 20200714
  Serious: Yes (Other)
  Sender: FDA-Public Use
  Company Number: US-APOPHARMA INC-2020AP011135

PATIENT
  Sex: Male
  Weight: 65 kg

DRUGS (7)
  1. FERRIPROX [Suspect]
     Active Substance: DEFERIPRONE
     Indication: HAEMOCHROMATOSIS
  2. ADDERALL [Concomitant]
     Active Substance: AMPHETAMINE ASPARTATE\AMPHETAMINE SULFATE\DEXTROAMPHETAMINE SACCHARATE\DEXTROAMPHETAMINE SULFATE
     Indication: PRODUCT USED FOR UNKNOWN INDICATION
     Route: 065
  3. DESFERAL [Concomitant]
     Active Substance: DEFEROXAMINE MESYLATE
     Indication: PRODUCT USED FOR UNKNOWN INDICATION
     Route: 065
  4. ATIVAN [Concomitant]
     Active Substance: LORAZEPAM
     Indication: PRODUCT USED FOR UNKNOWN INDICATION
     Route: 065
  5. FERRIPROX [Suspect]
     Active Substance: DEFERIPRONE
     Indication: MYELODYSPLASTIC SYNDROME
     Dosage: 38 MG/KG, TID
     Route: 048
     Dates: start: 20131022
  6. LEXAPRO [Concomitant]
     Active Substance: ESCITALOPRAM OXALATE
     Indication: PRODUCT USED FOR UNKNOWN INDICATION
     Route: 065
  7. PREDNISONE. [Concomitant]
     Active Substance: PREDNISONE
     Indication: PRODUCT USED FOR UNKNOWN INDICATION
     Route: 065

REACTIONS (1)
  - Shoulder operation [Recovering/Resolving]

NARRATIVE: CASE EVENT DATE: 2020
